FAERS Safety Report 18126719 (Version 1)
Quarter: 2020Q3

REPORT INFORMATION
  Report Type: Spontaneous
  Country: US (occurrence: US)
  Receive Date: 20200809
  Receipt Date: 20200809
  Transmission Date: 20201103
  Serious: No
  Sender: FDA-Public Use
  Company Number: US-LEO PHARMA-326386

PATIENT
  Age: 60 Year
  Sex: Male

DRUGS (1)
  1. PICATO [Suspect]
     Active Substance: INGENOL MEBUTATE
     Indication: PRODUCT USED FOR UNKNOWN INDICATION
     Dosage: 2 DAYS, APRIL 2018
     Route: 061
     Dates: start: 201804, end: 201804

REACTIONS (1)
  - Application site vesicles [Recovered/Resolved]
